FAERS Safety Report 10298491 (Version 1)
Quarter: 2014Q3

REPORT INFORMATION
  Report Type: Spontaneous
  Country: FR (occurrence: FR)
  Receive Date: 20140711
  Receipt Date: 20140711
  Transmission Date: 20150326
  Serious: Yes (Life-Threatening)
  Sender: FDA-Public Use
  Company Number: FR-SA-2014SA088961

PATIENT
  Age: 18 Year
  Sex: Male

DRUGS (4)
  1. RENITEC [Concomitant]
     Active Substance: ENALAPRIL MALEATE
  2. CEFOTAXIME [Suspect]
     Active Substance: CEFOTAXIME\CEFOTAXIME SODIUM
     Indication: PYREXIA
     Dosage: ROUTE: IV (PERFUSION)
     Dates: start: 20070924
  3. ORACILLINE [Concomitant]
     Active Substance: PENICILLIN V
  4. SPECIAFOLDINE [Concomitant]
     Active Substance: FOLIC ACID

REACTIONS (4)
  - Anaphylactic shock [Recovered/Resolved]
  - Angioedema [Recovered/Resolved]
  - Pruritus [Recovered/Resolved]
  - Cardio-respiratory arrest [Unknown]

NARRATIVE: CASE EVENT DATE: 20070924
